FAERS Safety Report 8619217 (Version 2)
Quarter: 2012Q4

REPORT INFORMATION
  Report Type: Report from Study
  Country: US (occurrence: US)
  Receive Date: 20120618
  Receipt Date: 20120904
  Transmission Date: 20130627
  Serious: Yes (Hospitalization, Other)
  Sender: FDA-Public Use
  Company Number: US-ASTELLAS-2012US005375

PATIENT
  Age: 80 Year
  Sex: Female
  Weight: 70 kg

DRUGS (3)
  1. ERLOTINIB TABLET [Suspect]
     Indication: LUNG SQUAMOUS CELL CARCINOMA STAGE UNSPECIFIED
     Dosage: 100 mg, UID/QD
     Route: 048
     Dates: start: 20120411
  2. ERLOTINIB TABLET [Suspect]
     Dosage: 50 mg, UID/QD
     Route: 048
     Dates: end: 20120528
  3. SELUMETINIB SULFATE [Suspect]
     Indication: LUNG SQUAMOUS CELL CARCINOMA STAGE UNSPECIFIED
     Dosage: 150 mg, UID/QD
     Route: 048
     Dates: start: 20120411, end: 20120529

REACTIONS (12)
  - Incorrect dose administered [Unknown]
  - Lymphocyte count decreased [Unknown]
  - Hypotension [Recovering/Resolving]
  - Hypoalbuminaemia [Unknown]
  - Haemoglobin decreased [Unknown]
  - Muscular weakness [Unknown]
  - Blood creatinine increased [Recovering/Resolving]
  - Dehydration [Recovered/Resolved]
  - Nausea [Recovered/Resolved]
  - Vomiting [Recovered/Resolved]
  - Diarrhoea [Unknown]
  - Melaena [Unknown]
